FAERS Safety Report 9817313 (Version 1)
Quarter: 2014Q1

REPORT INFORMATION
  Report Type: Report from Study
  Country: CN (occurrence: CN)
  Receive Date: 20140115
  Receipt Date: 20140115
  Transmission Date: 20141002
  Serious: Yes (Other)
  Sender: FDA-Public Use
  Company Number: CN-ROCHE-1333358

PATIENT
  Sex: Female
  Weight: 55 kg

DRUGS (2)
  1. CELLCEPT [Suspect]
     Indication: RENAL TRANSPLANT
     Route: 048
     Dates: start: 20090924
  2. PROGRAF [Concomitant]
     Indication: RENAL TRANSPLANT
     Dosage: 2.5 MG PER DAY
     Route: 048
     Dates: start: 20090924

REACTIONS (2)
  - Cataract [Unknown]
  - Macular hole [Recovering/Resolving]
